FAERS Safety Report 6401896-4 (Version None)
Quarter: 2009Q4

REPORT INFORMATION
  Report Type: 
  Country: None (occurrence: None)
  Receive Date: 20091013
  Receipt Date: 20091013
  Transmission Date: 20100525
  Serious: Yes (Other)
  Sender: FDA-Public Use
  Company Number: None

PATIENT
  Age: 37 Year
  Sex: Female
  Weight: 49.8957 kg

DRUGS (1)
  1. LAMOTRIGINE [Suspect]
     Indication: BIPOLAR I DISORDER
     Dosage: 100 MG 2X/ DAY PO
     Route: 048
     Dates: start: 20090219, end: 20091010

REACTIONS (2)
  - SUICIDAL IDEATION [None]
  - VULVOVAGINAL MYCOTIC INFECTION [None]
